FAERS Safety Report 8587158-8 (Version None)
Quarter: 2012Q3

REPORT INFORMATION
  Report Type: 
  Country: None (occurrence: None)
  Receive Date: 20120810
  Receipt Date: 20120717
  Transmission Date: 20120928
  Serious: Yes (Other)
  Sender: FDA-Public Use
  Company Number: JP-009507513-2012SP030075

PATIENT

DRUGS (22)
  1. PEG-INTRON [Suspect]
     Indication: HEPATITIS C
     Dosage: 1.5MCG/KG/WEEK
     Route: 058
     Dates: start: 20120406, end: 20120511
  2. PEG-INTRON [Suspect]
     Dosage: UNK
  3. REBETOL [Suspect]
     Dosage: 200 MG, QD
     Route: 048
     Dates: start: 20120428, end: 20120517
  4. ALLOPURINOL [Concomitant]
     Indication: HEPATITIS C
     Dosage: 100 MG, ONCE
     Route: 048
     Dates: start: 20120428, end: 20120503
  5. REBETOL [Suspect]
     Indication: HEPATITIS C
     Dosage: 600 MG, QD
     Route: 048
     Dates: start: 20120406, end: 20120416
  6. REBETOL [Suspect]
     Dosage: 200 MG, ONCE
     Route: 048
     Dates: start: 20120622
  7. NORVASC [Concomitant]
     Dosage: 2.5 MG, ONCE
     Route: 048
  8. ALLOPURINOL [Concomitant]
     Dosage: 200 MG, ONCE
     Route: 048
     Dates: start: 20120504, end: 20120525
  9. ALLOPURINOL [Concomitant]
     Dosage: 200 MG, QD
     Route: 048
     Dates: start: 20120504
  10. ANTIVIRAL (UNSPECIFIED) [Suspect]
     Indication: HEPATITIS C
     Dosage: 2250 MG, QD
     Route: 048
     Dates: start: 20120406, end: 20120518
  11. RHYTHMY [Concomitant]
     Indication: INSOMNIA
     Dosage: 2 MG, ONCE
     Route: 048
     Dates: start: 20120504
  12. PEG-INTRON [Suspect]
     Dosage: 1.5MCG/KG/WEEK
     Route: 058
     Dates: start: 20120622
  13. NORVASC [Concomitant]
     Indication: PROPHYLAXIS
     Dosage: 2.5 MG, QD
     Route: 048
  14. LEVOGLUTAMIDE (+) SODIUM GUALENATE [Concomitant]
     Indication: PROPHYLAXIS
     Dosage: 1.5 G, QD
     Route: 048
     Dates: start: 20120427
  15. ALLOPURINOL [Concomitant]
     Dosage: 100 MG, ONCE
     Route: 048
     Dates: start: 20120526
  16. REBETOL [Suspect]
     Dosage: 400 MG, QD
     Route: 048
     Dates: start: 20120417, end: 20120427
  17. SULPRIDE [Concomitant]
     Route: 048
     Dates: start: 20120511
  18. CANDESARTAN CILEXETIL [Concomitant]
     Route: 048
  19. MARZULENE-S [Concomitant]
     Indication: PROPHYLAXIS
     Route: 048
     Dates: start: 20120427
  20. CANDESARTAN CILEXETIL [Concomitant]
     Indication: PROPHYLAXIS
     Dosage: 8 MG, QD
     Route: 048
  21. SULPRIDE [Concomitant]
     Indication: DECREASED APPETITE
     Dosage: 150 MG, QD
     Route: 048
     Dates: start: 20120511
  22. TELAVIC [Suspect]
     Indication: HEPATITIS C
     Route: 048
     Dates: start: 20120406, end: 20120518

REACTIONS (2)
  - ANAEMIA [None]
  - RENAL IMPAIRMENT [None]
